FAERS Safety Report 7266554-5 (Version None)
Quarter: 2011Q1

REPORT INFORMATION
  Report Type: 
  Country: None (occurrence: None)
  Receive Date: 20110131
  Receipt Date: 20110118
  Transmission Date: 20110831
  Serious: Yes (Death)
  Sender: FDA-Public Use
  Company Number: JP-ELI_LILLY_AND_COMPANY-JP201101004031

PATIENT
  Age: 90 Year
  Sex: Female

DRUGS (8)
  1. FORTEO [Suspect]
     Indication: OSTEOPOROSIS
     Dosage: 20 UG, DAILY (1/D)
     Route: 058
     Dates: start: 20101101, end: 20110114
  2. BUP-4 [Concomitant]
  3. MUCOSTA [Concomitant]
     Indication: ABDOMINAL PAIN UPPER
     Dosage: 1 D/F, DAILY (1/D)
     Route: 048
  4. MAGNESIUM OXIDE HEAVY [Concomitant]
     Indication: CONSTIPATION
     Dosage: 1 G, DAILY (1/D)
     Route: 048
  5. VOLTAREN                                /SCH/ [Concomitant]
     Dosage: 25 MG, UNK
  6. POSTERISAN FORTE [Concomitant]
  7. OMEPRAL [Concomitant]
     Dosage: 10 MG, UNK
     Route: 048
  8. LYRICA [Concomitant]
     Indication: NEURALGIA
     Route: 048
     Dates: start: 20101101

REACTIONS (1)
  - CEREBRAL INFARCTION [None]
